FAERS Safety Report 6390333-4 (Version None)
Quarter: 2009Q4

REPORT INFORMATION
  Report Type: 
  Country: None (occurrence: None)
  Receive Date: 20091006
  Receipt Date: 20090926
  Transmission Date: 20100525
  Serious: Yes (Other)
  Sender: FDA-Public Use
  Company Number: JP-ABBOTT-09P-087-0599868-00

PATIENT
  Age: 35 Year
  Sex: Female
  Weight: 48 kg

DRUGS (7)
  1. SEVOFLURANE [Suspect]
     Indication: MAINTENANCE OF ANAESTHESIA
     Dosage: 1.2 - 1.5%
     Route: 055
  2. PHENYTOIN [Concomitant]
     Indication: EPILEPSY
     Route: 048
  3. PROPOFOL [Concomitant]
     Indication: INDUCTION OF ANAESTHESIA
     Route: 042
  4. FENTANYL-100 [Concomitant]
     Indication: INDUCTION OF ANAESTHESIA
     Route: 065
  5. ROCURONIUM BROMIDE [Concomitant]
     Indication: ENDOTRACHEAL INTUBATION
     Route: 042
  6. OXYGEN [Concomitant]
     Indication: MAINTENANCE OF ANAESTHESIA
     Route: 055
  7. REMIFENTANIL [Concomitant]
     Indication: MAINTENANCE OF ANAESTHESIA
     Dosage: 0.1 - 0.2 MCG/KG/MIN
     Route: 042

REACTIONS (1)
  - STATUS EPILEPTICUS [None]
